FAERS Safety Report 7095378-7 (Version None)
Quarter: 2010Q4

REPORT INFORMATION
  Report Type: 
  Country: None (occurrence: None)
  Receive Date: 20101018
  Receipt Date: 20090923
  Transmission Date: 20110411
  Serious: Yes (Hospitalization, Other)
  Sender: FDA-Public Use
  Company Number: US-WYE-H11186309

PATIENT
  Age: 42 Year
  Sex: Female
  Weight: 72.64 kg

DRUGS (3)
  1. PREMARIN [Suspect]
     Indication: HORMONE REPLACEMENT THERAPY
     Dosage: 0.625 MG 1X 1 DAY, ORAL
     Route: 048
     Dates: start: 20040101, end: 20090101
  2. SYNTHROID [Concomitant]
  3. TOPAMAX [Concomitant]

REACTIONS (1)
  - THROMBOSIS [None]
